FAERS Safety Report 5726874-X (Version None)
Quarter: 2008Q2

REPORT INFORMATION
  Report Type: 
  Country: None (occurrence: None)
  Receive Date: 20080502
  Receipt Date: 20080423
  Transmission Date: 20081010
  Serious: Yes (Hospitalization)
  Sender: FDA-Public Use
  Company Number: FR-PFIZER INC-2008036049

PATIENT
  Age: 76 Year
  Sex: Female

DRUGS (10)
  1. ATORVASTATIN CALCIUM [Suspect]
     Indication: DYSLIPIDAEMIA
     Route: 048
  2. PROZAC [Interacting]
     Indication: DEPRESSION
     Route: 048
  3. PREVISCAN [Interacting]
     Indication: CEREBRAL ISCHAEMIA
     Route: 048
  4. FOSAVANCE [Concomitant]
     Dosage: TEXT:1 DF
     Route: 048
  5. NULYTELY [Concomitant]
     Indication: CONSTIPATION
     Dosage: TEXT:1 DF
     Route: 048
  6. LAROXYL [Concomitant]
     Indication: DEPRESSION
     Dosage: DAILY DOSE:100MG
     Route: 048
  7. LASILIX [Concomitant]
  8. ZOLPIDEM TARTRATE [Concomitant]
  9. NEURONTIN [Concomitant]
  10. DIFFU K [Concomitant]

REACTIONS (2)
  - DRUG INTERACTION [None]
  - HAEMATOMA [None]
